FAERS Safety Report 9292783 (Version 2)
Quarter: 2013Q3

REPORT INFORMATION
  Report Type: Spontaneous
  Country: US (occurrence: US)
  Receive Date: 20130516
  Receipt Date: 20130718
  Transmission Date: 20140515
  Serious: Yes (Hospitalization)
  Sender: FDA-Public Use
  Company Number: US-BAYER-2013-059999

PATIENT
  Age: 46 Year
  Sex: Female
  Weight: 136 kg

DRUGS (6)
  1. SAFYRAL [Suspect]
  2. IBUPROFEN [Concomitant]
     Dosage: 200 MG, FOUR TIMES DAILY AS NEEDED
  3. MULTIVITAMIN [Concomitant]
     Dosage: 1 DF, DAILY
  4. ZYRTEC [Concomitant]
     Dosage: 10 MG, DAILY
  5. CHONDROITIN W/GLUCOSAMINE [Concomitant]
     Dosage: 1 DF, THREE TIMES DAILY
     Route: 048
  6. HYDROCHLOROTHIAZIDE [Concomitant]
     Dosage: 1 DF, ONCE DAILY
     Route: 048

REACTIONS (2)
  - Pulmonary embolism [None]
  - Deep vein thrombosis [None]
